FAERS Safety Report 5149454-6 (Version None)
Quarter: 2006Q4

REPORT INFORMATION
  Report Type: 
  Country: None (occurrence: None)
  Receive Date: 20061113
  Receipt Date: 20060125
  Transmission Date: 20070319
  Serious: No
  Sender: FDA-Public Use
  Company Number: 433739

PATIENT
  Age: 66 Year
  Sex: Male

DRUGS (3)
  1. COREG [Suspect]
     Indication: HYPERTENSION
     Dosage: 3.125MG PER DAY
     Route: 048
     Dates: start: 20051001
  2. DOXAZOSIN MESYLATE [Concomitant]
  3. GLUCOSAMINE [Concomitant]

REACTIONS (1)
  - DRUG INEFFECTIVE [None]
